FAERS Safety Report 20034743 (Version 1)
Quarter: 2021Q4

REPORT INFORMATION
  Report Type: Spontaneous
  Country: FR (occurrence: FR)
  Receive Date: 20211104
  Receipt Date: 20211104
  Transmission Date: 20220303
  Serious: Yes (Hospitalization)
  Sender: FDA-Public Use
  Company Number: None

PATIENT
  Age: 53 Year
  Sex: Female
  Weight: 65 kg

DRUGS (16)
  1. INIPOMP [Suspect]
     Active Substance: PANTOPRAZOLE SODIUM
     Indication: Oesophageal varices haemorrhage
     Dosage: 80 MILLIGRAM, QD
     Route: 040
     Dates: start: 20210724, end: 20210724
  2. INIPOMP [Suspect]
     Active Substance: PANTOPRAZOLE SODIUM
     Dosage: 8 MILLIGRAM, Q1HR
     Route: 041
     Dates: start: 20210724, end: 20210727
  3. PROPOFOL [Suspect]
     Active Substance: PROPOFOL
     Indication: General anaesthesia
     Dosage: 1600 MILLIGRAM
     Route: 041
     Dates: start: 20210725, end: 20210726
  4. ERYTHROMYCIN [Suspect]
     Active Substance: ERYTHROMYCIN
     Indication: Oesophageal varices haemorrhage
     Dosage: 250 MILLIGRAM, QD
     Route: 041
     Dates: start: 20210724, end: 20210724
  5. OCTREOTIDE ACETATE [Suspect]
     Active Substance: OCTREOTIDE ACETATE
     Indication: Oesophageal varices haemorrhage
     Dosage: 1200 MICROGRAM, QD
     Route: 041
     Dates: start: 20210724, end: 20210727
  6. SUFENTANIL [Suspect]
     Active Substance: SUFENTANIL
     Indication: General anaesthesia
     Dosage: 90 MILLIGRAM
     Route: 041
     Dates: start: 20210725, end: 20210726
  7. AMITRIPTYLINE HYDROCHLORIDE [Suspect]
     Active Substance: AMITRIPTYLINE HYDROCHLORIDE
     Indication: Major depression
     Dosage: 25 MILLIGRAM, QD
     Route: 048
     Dates: end: 20210725
  8. DUPHALAC [Concomitant]
     Active Substance: LACTULOSE
     Indication: Hepatic encephalopathy
     Dosage: 90 GRAM, QD
     Route: 048
     Dates: start: 20210725
  9. ALBUMIN HUMAN [Concomitant]
     Active Substance: ALBUMIN HUMAN
     Indication: Hepatic encephalopathy
     Dosage: 60 GRAM, QD
     Route: 041
     Dates: start: 20210725, end: 20210726
  10. ALBUMIN HUMAN [Concomitant]
     Active Substance: ALBUMIN HUMAN
     Dosage: 40 GRAM, QD
     Route: 041
     Dates: start: 20210726, end: 20210727
  11. CEFTRIAXONE SODIUM [Concomitant]
     Active Substance: CEFTRIAXONE SODIUM
     Indication: Hepatic encephalopathy
     Dosage: 1 GRAM, QD
     Route: 041
     Dates: start: 20210724, end: 20210730
  12. BROMAZEPAM [Concomitant]
     Active Substance: BROMAZEPAM
     Indication: Anxiety
     Dosage: 4.5 MILLIGRAM, QD
     Dates: end: 20210724
  13. NOREPINEPHRINE HYDROCHLORIDE, (+/-)- [Concomitant]
     Active Substance: NOREPINEPHRINE HYDROCHLORIDE, (+/-)-
     Indication: Hypotension
     Dosage: 0.2 MICROGRAM/KILOGRAM
     Route: 041
     Dates: start: 20210725, end: 20210726
  14. ACUPAN [Concomitant]
     Active Substance: NEFOPAM HYDROCHLORIDE
     Indication: Abdominal pain
     Dosage: 20 MILLIGRAM, QD
     Route: 041
     Dates: start: 20210724, end: 20210724
  15. GLICLAZIDE [Concomitant]
     Active Substance: GLICLAZIDE
     Indication: Type 2 diabetes mellitus
     Dosage: 30 MILLIGRAM, QD
     Route: 048
     Dates: end: 20210724
  16. RIFAXIMIN [Concomitant]
     Active Substance: RIFAXIMIN
     Indication: Hepatic encephalopathy
     Dosage: 1100 MILLIGRAM, QD
     Route: 048
     Dates: start: 20210725

REACTIONS (3)
  - Electrocardiogram QT prolonged [Recovered/Resolved]
  - Torsade de pointes [Recovered/Resolved]
  - Off label use [Unknown]

NARRATIVE: CASE EVENT DATE: 20210724
